FAERS Safety Report 7599772-7 (Version None)
Quarter: 2011Q3

REPORT INFORMATION
  Report Type: 
  Country: None (occurrence: None)
  Receive Date: 20110711
  Receipt Date: 20110630
  Transmission Date: 20111222
  Serious: Yes (Other)
  Sender: FDA-Public Use
  Company Number: US-BAYER-2011-056884

PATIENT
  Sex: Female

DRUGS (1)
  1. MIRENA [Suspect]
     Dosage: UNK
     Dates: start: 20100101, end: 20110627

REACTIONS (3)
  - POST PROCEDURAL HAEMORRHAGE [None]
  - MEDICAL DEVICE PAIN [None]
  - GENITAL HAEMORRHAGE [None]
